FAERS Safety Report 7565860-4 (Version None)
Quarter: 2011Q2

REPORT INFORMATION
  Report Type: 
  Country: None (occurrence: None)
  Receive Date: 20110623
  Receipt Date: 20110621
  Transmission Date: 20111010
  Serious: No
  Sender: FDA-Public Use
  Company Number: US-PFIZER INC-2011137125

PATIENT
  Age: 9 Year
  Sex: Male

DRUGS (1)
  1. ADVIL LIQUI-GELS [Suspect]
     Indication: PYREXIA
     Dosage: UNK
     Route: 065
     Dates: start: 20110620, end: 20110620

REACTIONS (5)
  - CRYING [None]
  - AGITATION [None]
  - HALLUCINATION [None]
  - BODY TEMPERATURE INCREASED [None]
  - ABNORMAL BEHAVIOUR [None]
